FAERS Safety Report 21130118 (Version 3)
Quarter: 2022Q3

REPORT INFORMATION
  Report Type: Spontaneous
  Country: DE (occurrence: DE)
  Receive Date: 20220726
  Receipt Date: 20220809
  Transmission Date: 20221027
  Serious: Yes (Hospitalization, Other)
  Sender: FDA-Public Use
  Company Number: DE-NOVOPROD-927292

PATIENT
  Age: 59 Year
  Sex: Male
  Weight: 88 kg

DRUGS (5)
  1. PROTAPHANE [Suspect]
     Active Substance: INSULIN HUMAN
     Indication: Product used for unknown indication
     Dosage: UNK
  2. ACTRAPID [Suspect]
     Active Substance: INSULIN HUMAN
     Indication: Product used for unknown indication
     Dosage: UNK
  3. VENLAFAXINE HYDROCHLORIDE [Concomitant]
     Active Substance: VENLAFAXINE HYDROCHLORIDE
     Indication: Product used for unknown indication
     Dosage: 37.5 MG, QD
     Route: 048
     Dates: start: 2018
  4. CHOLECALCIFEROL [Concomitant]
     Active Substance: CHOLECALCIFEROL
     Indication: Product used for unknown indication
     Dosage: 1000 MG, QD
     Route: 048
     Dates: start: 2002
  5. DIGITOXIN [Concomitant]
     Active Substance: DIGITOXIN
     Indication: Tachycardia
     Dosage: 0.1 MG, QD(1/2)
     Route: 048
     Dates: start: 2007

REACTIONS (3)
  - Spinal compression fracture [Not Recovered/Not Resolved]
  - Hypoglycaemic unconsciousness [Not Recovered/Not Resolved]
  - Device breakage [Unknown]

NARRATIVE: CASE EVENT DATE: 20220127
